FAERS Safety Report 12520860 (Version 1)
Quarter: 2016Q2

REPORT INFORMATION
  Report Type: Spontaneous
  Country: US (occurrence: None)
  Receive Date: 20160630
  Receipt Date: 20160630
  Transmission Date: 20160815
  Serious: Yes (Other)
  Sender: FDA-Public Use
  Company Number: None

PATIENT
  Age: 66 Year
  Sex: Female
  Weight: 99.79 kg

DRUGS (9)
  1. VITAMIN D [Concomitant]
     Active Substance: CHOLECALCIFEROL
  2. HYDROCHLOROTHIAZIDE. [Concomitant]
     Active Substance: HYDROCHLOROTHIAZIDE
  3. LEVOXYL [Concomitant]
     Active Substance: LEVOTHYROXINE SODIUM
  4. MULTI-VIT W/OMEGA 3 FOR OVER 50 [Concomitant]
  5. VITAMIN C [Concomitant]
     Active Substance: ASCORBIC ACID
  6. CLINDAMYCIN HCL [Suspect]
     Active Substance: CLINDAMYCIN HYDROCHLORIDE
     Indication: GINGIVITIS
     Dosage: 150 MG 28 4 TIMES DAILY (EVERY 6 HRS) BY MOUTH
     Route: 048
     Dates: start: 20160613, end: 20160619
  7. HYDROCODONE [Concomitant]
     Active Substance: HYDROCODONE
  8. VITAMIN B COMPLEX WITH C [Concomitant]
     Active Substance: ASCORBIC ACID\CALCIUM PANTOTHENATE\CYANOCOBALAMIN\NIACINAMIDE\PYRIDOXINE HYDROCHLORIDE\RIBOFLAVIN\THIAMINE MONONITRATE
  9. COQ10 [Concomitant]
     Active Substance: UBIDECARENONE

REACTIONS (6)
  - Diarrhoea [None]
  - Headache [None]
  - Pain [None]
  - Dry mouth [None]
  - Arthralgia [None]
  - Spinal pain [None]

NARRATIVE: CASE EVENT DATE: 20160618
